FAERS Safety Report 5374793-3 (Version None)
Quarter: 2007Q2

REPORT INFORMATION
  Report Type: 
  Country: None (occurrence: None)
  Receive Date: 20070625
  Receipt Date: 20070330
  Transmission Date: 20071010
  Serious: Yes (Hospitalization)
  Sender: FDA-Public Use
  Company Number: 07P-163-0357161-00

PATIENT
  Age: 59 Year
  Sex: Female
  Weight: 81.6475 kg

DRUGS (8)
  1. HUMIRA [Suspect]
     Indication: PSORIATIC ARTHROPATHY
     Dosage: 40 MG, 1 IN 2 WK, SUBCUTANEOUS   40 MG, 1 IN 2 WK, SUBCUTANEOUS
     Route: 058
     Dates: start: 20070112, end: 20070129
  2. HUMIRA [Suspect]
     Indication: PSORIATIC ARTHROPATHY
     Dosage: 40 MG, 1 IN 2 WK, SUBCUTANEOUS   40 MG, 1 IN 2 WK, SUBCUTANEOUS
     Route: 058
     Dates: start: 20070208
  3. METHOTREXATE [Concomitant]
  4. THYROID TAB [Concomitant]
  5. ISRADIPINE [Concomitant]
  6. ATENOLOL [Concomitant]
  7. ESTROGENS CONJUGATED [Concomitant]
  8. VENLAFAXIINE HCL [Concomitant]

REACTIONS (4)
  - CYSTITIS [None]
  - FALL [None]
  - INJECTION SITE PAIN [None]
  - LOWER LIMB FRACTURE [None]
